FAERS Safety Report 7506768-X (Version None)
Quarter: 2011Q2

REPORT INFORMATION
  Report Type: 
  Country: None (occurrence: None)
  Receive Date: 20110526
  Receipt Date: 20110520
  Transmission Date: 20111010
  Serious: Yes (Other)
  Sender: FDA-Public Use
  Company Number: GB-PFIZER INC-2011109910

PATIENT
  Age: 39 Year
  Sex: Female

DRUGS (1)
  1. VARENICLINE TARTRATE [Suspect]
     Indication: SMOKING CESSATION THERAPY

REACTIONS (8)
  - PANIC ATTACK [None]
  - DEPRESSED MOOD [None]
  - FATIGUE [None]
  - ABDOMINAL DISTENSION [None]
  - MENSTRUAL DISORDER [None]
  - PAIN [None]
  - ANXIETY [None]
  - SOCIAL AVOIDANT BEHAVIOUR [None]
